FAERS Safety Report 5640943-4 (Version None)
Quarter: 2008Q1

REPORT INFORMATION
  Report Type: 
  Country: None (occurrence: None)
  Receive Date: 20080227
  Receipt Date: 20080221
  Transmission Date: 20080703
  Serious: Yes (Other)
  Sender: FDA-Public Use
  Company Number: US-MERCK-0802USA05222

PATIENT
  Age: 81 Year
  Sex: Female

DRUGS (10)
  1. PRINIVIL [Suspect]
     Indication: BLOOD PRESSURE SYSTOLIC INCREASED
     Route: 048
  2. PRINIVIL [Suspect]
     Indication: CARDIAC FAILURE CONGESTIVE
     Route: 048
  3. CLONIDINE [Suspect]
     Indication: BLOOD PRESSURE SYSTOLIC INCREASED
     Route: 065
  4. CLONIDINE [Suspect]
     Indication: CARDIAC FAILURE CONGESTIVE
     Route: 065
  5. AMLODIPINE BESYLATE [Suspect]
     Indication: BLOOD PRESSURE SYSTOLIC INCREASED
     Route: 065
  6. AMLODIPINE BESYLATE [Suspect]
     Indication: CARDIAC FAILURE CONGESTIVE
     Route: 065
  7. DOXAZOSIN MESYLATE [Suspect]
     Indication: BLOOD PRESSURE SYSTOLIC INCREASED
     Route: 065
  8. DOXAZOSIN MESYLATE [Suspect]
     Indication: CARDIAC FAILURE CONGESTIVE
     Route: 065
  9. VERAPAMIL [Suspect]
     Indication: BLOOD PRESSURE SYSTOLIC INCREASED
     Route: 065
  10. VERAPAMIL [Suspect]
     Indication: CARDIAC FAILURE CONGESTIVE
     Route: 065

REACTIONS (16)
  - AORTIC STENOSIS [None]
  - ARTERIAL DISORDER [None]
  - CARDIAC FAILURE CONGESTIVE [None]
  - CORONARY ARTERY DISEASE [None]
  - DISEASE PROGRESSION [None]
  - DRUG INEFFECTIVE [None]
  - HYPERTENSION [None]
  - ILIAC ARTERY OCCLUSION [None]
  - MITRAL VALVE INCOMPETENCE [None]
  - MITRAL VALVE STENOSIS [None]
  - NEPHROPATHY TOXIC [None]
  - PULMONARY OEDEMA [None]
  - RENAL ARTERY OCCLUSION [None]
  - RENAL ATROPHY [None]
  - RESPIRATORY ARREST [None]
  - RESPIRATORY FAILURE [None]
